FAERS Safety Report 4580368-6 (Version None)
Quarter: 2005Q1

REPORT INFORMATION
  Report Type: 
  Country: None (occurrence: None)
  Receive Date: 20050127
  Receipt Date: 20041026
  Transmission Date: 20050727
  Serious: No
  Sender: FDA-Public Use
  Company Number: USA040772972

PATIENT
  Age: 42 Year
  Sex: Male
  Weight: 77 kg

DRUGS (4)
  1. STRATTERA [Suspect]
     Indication: ATTENTION DEFICIT/HYPERACTIVITY DISORDER
     Dosage: 25 MG DAY
  2. PROZAC [Concomitant]
     Dosage: 20 MG DAY
     Route: 048
  3. KLONOPIN [Concomitant]
  4. MILK OF MAGNESIA [Concomitant]

REACTIONS (4)
  - AMNESIA [None]
  - DELIRIUM [None]
  - DRUG WITHDRAWAL SYNDROME [None]
  - FLAT AFFECT [None]
